FAERS Safety Report 17585616 (Version 11)
Quarter: 2020Q3

REPORT INFORMATION
  Report Type: Report from Study
  Country: FR (occurrence: FR)
  Receive Date: 20200326
  Receipt Date: 20200813
  Transmission Date: 20201102
  Serious: Yes (Death, Hospitalization)
  Sender: FDA-Public Use
  Company Number: FR-EISAI MEDICAL RESEARCH-EC-2020-072276

PATIENT
  Age: 62 Year
  Sex: Male
  Weight: 83 kg

DRUGS (19)
  1. METFORMIN [Concomitant]
     Active Substance: METFORMIN HYDROCHLORIDE
     Dates: start: 20061110, end: 20200507
  2. FIVASA [Concomitant]
     Dates: start: 20191017, end: 20200507
  3. LENVATINIB [Suspect]
     Active Substance: LENVATINIB
     Indication: HEPATOCELLULAR CARCINOMA
     Dosage: STARTING AT 12 MILLIGRAM (BODY WEIGHT (BW) MORE THAN OR EQUAL TO 60 KG), FLUCTUATED DOSAGE
     Route: 048
     Dates: start: 20191114, end: 20200225
  4. INSULIN [Concomitant]
     Active Substance: INSULIN NOS
     Dates: start: 20120831, end: 20200518
  5. PROPRANOLOL [Concomitant]
     Active Substance: PROPRANOLOL HYDROCHLORIDE
     Dates: start: 20150304, end: 20200511
  6. PENTASA [Concomitant]
     Active Substance: MESALAMINE
     Dates: start: 20191017, end: 202005
  7. PERINDOPRIL [Concomitant]
     Active Substance: PERINDOPRIL
     Dates: start: 20090917, end: 20200507
  8. CODOLIPRANE [Concomitant]
     Active Substance: ACETAMINOPHEN\CODEINE PHOSPHATE
     Dates: start: 20191120, end: 20200507
  9. PEMBROLIZUMAB. [Suspect]
     Active Substance: PEMBROLIZUMAB
     Dates: start: 20200206, end: 20200206
  10. PANTOPRAZOLE [Concomitant]
     Active Substance: PANTOPRAZOLE
     Dates: start: 20030319, end: 20200507
  11. HUMALOG [Concomitant]
     Active Substance: INSULIN LISPRO
     Dates: start: 20191017, end: 20200511
  12. LENVATINIB [Suspect]
     Active Substance: LENVATINIB
     Route: 048
     Dates: start: 20200226, end: 20200226
  13. CHOLURSO [Concomitant]
     Active Substance: URSODIOL
     Dates: start: 20120319, end: 20200509
  14. TOCO [Concomitant]
     Active Substance: .ALPHA.-TOCOPHEROL ACETATE, D-
     Dates: start: 20120319, end: 20200507
  15. TOPALGIC [Concomitant]
     Dates: start: 20200227, end: 20200507
  16. PEMBROLIZUMAB. [Suspect]
     Active Substance: PEMBROLIZUMAB
     Indication: HEPATOCELLULAR CARCINOMA
     Dates: start: 20191114, end: 20200116
  17. TARDYFERON [Concomitant]
     Active Substance: FERROUS SULFATE
     Dates: start: 20191113, end: 20200507
  18. KARDEGIC [Concomitant]
     Active Substance: ASPIRIN DL-LYSINE
     Dates: start: 20110114, end: 20200514
  19. METEOSPASMYL [Concomitant]
     Dates: start: 20191017, end: 20200507

REACTIONS (1)
  - Neutropenia [Not Recovered/Not Resolved]

NARRATIVE: CASE EVENT DATE: 20200316
